FAERS Safety Report 7349447-4 (Version None)
Quarter: 2011Q1

REPORT INFORMATION
  Report Type: 
  Country: None (occurrence: None)
  Receive Date: 20110314
  Receipt Date: 20100503
  Transmission Date: 20110831
  Serious: No
  Sender: FDA-Public Use
  Company Number: US-ABBOTT-10P-163-0642747-00

PATIENT
  Sex: Male
  Weight: 97.61 kg

DRUGS (2)
  1. DEPAKOTE [Suspect]
     Indication: BIPOLAR DISORDER
     Route: 048
     Dates: start: 19960101
  2. PRIMIDONE [Suspect]
     Indication: TREMOR
     Dates: start: 20100222

REACTIONS (3)
  - ASTHENIA [None]
  - TREMOR [None]
  - LOSS OF CONSCIOUSNESS [None]
